FAERS Safety Report 9238156 (Version 3)
Quarter: 2015Q1

REPORT INFORMATION
  Report Type: Spontaneous
  Country: US (occurrence: None)
  Receive Date: 20130415
  Receipt Date: 20150211
  Transmission Date: 20150721
  Serious: Yes (Disabling, Other)
  Sender: FDA-Public Use
  Company Number: 1304-463

PATIENT
  Age: 83 Year
  Sex: Female

DRUGS (4)
  1. EYLEA [Suspect]
     Active Substance: AFLIBERCEPT
     Indication: NEOVASCULAR AGE-RELATED MACULAR DEGENERATION
     Dosage: 2 MG, Q4WKS IN THE RIGHT EYE (OD)
     Route: 031
     Dates: start: 201209, end: 20130402
  2. PRILOSEC [Concomitant]
     Active Substance: OMEPRAZOLE MAGNESIUM
  3. NORVASC [Concomitant]
     Active Substance: AMLODIPINE BESYLATE
  4. BETADINE (POVIDONE-IODINE) [Concomitant]

REACTIONS (3)
  - Uveitis [None]
  - Blindness [None]
  - Visual acuity reduced [None]

NARRATIVE: CASE EVENT DATE: 20130329
